FAERS Safety Report 4750565-5 (Version None)
Quarter: 2005Q3

REPORT INFORMATION
  Report Type: 
  Country: None (occurrence: None)
  Receive Date: 20050823
  Receipt Date: 20050817
  Transmission Date: 20060218
  Serious: Yes (Other)
  Sender: FDA-Public Use
  Company Number: PHBS2005NZ12082

PATIENT
  Age: 40 Year
  Sex: Male

DRUGS (4)
  1. VALPROIC ACID [Concomitant]
     Dosage: 800 MG/D
     Route: 065
  2. THYROXINE [Concomitant]
     Dosage: 200 UG/D
     Route: 065
  3. CLOZARIL [Suspect]
     Dosage: 500 MG/D
     Route: 065
  4. CLOZARIL [Suspect]
     Dosage: 350 MG/D
     Route: 065

REACTIONS (2)
  - DRUG LEVEL INCREASED [None]
  - ELECTROCARDIOGRAM QT PROLONGED [None]
